FAERS Safety Report 17111984 (Version 1)
Quarter: 2019Q4

REPORT INFORMATION
  Report Type: Spontaneous
  Country: CA (occurrence: CA)
  Receive Date: 20191204
  Receipt Date: 20191204
  Transmission Date: 20200122
  Serious: Yes (Hospitalization, Other)
  Sender: FDA-Public Use
  Company Number: CA-MYLANLABS-2019M1118582

PATIENT
  Age: 9 Month
  Sex: Male

DRUGS (1)
  1. HYDROCORTISONE. [Suspect]
     Active Substance: HYDROCORTISONE
     Indication: RASH PRURITIC
     Dosage: UNK
     Route: 061

REACTIONS (2)
  - Idiopathic intracranial hypertension [Recovered/Resolved]
  - Hypothyroidism [Unknown]
